FAERS Safety Report 21932608 (Version 1)
Quarter: 2023Q1

REPORT INFORMATION
  Report Type: Spontaneous
  Country: US (occurrence: None)
  Receive Date: 20230131
  Receipt Date: 20230131
  Transmission Date: 20230417
  Serious: No
  Sender: FDA-Public Use
  Company Number: None

PATIENT

DRUGS (3)
  1. FLUOROURACIL [Suspect]
     Active Substance: FLUOROURACIL
  2. PROPOFOL [Suspect]
     Active Substance: PROPOFOL
  3. DEVICE [Suspect]
     Active Substance: DEVICE

REACTIONS (5)
  - Device malfunction [None]
  - Blood pressure decreased [None]
  - Device programming error [None]
  - Medical device monitoring error [None]
  - Incorrect drug administration rate [None]
